FAERS Safety Report 6106467-5 (Version None)
Quarter: 2009Q1

REPORT INFORMATION
  Report Type: 
  Country: None (occurrence: None)
  Receive Date: 20090306
  Receipt Date: 20080724
  Transmission Date: 20090719
  Serious: Yes (Disabling)
  Sender: FDA-Public Use
  Company Number: DE-SANOFI-SYNTHELABO-A04200701836

PATIENT
  Sex: Male

DRUGS (4)
  1. FLUOROURACIL [Suspect]
     Indication: COLON CANCER
     Dosage: UNK
     Route: 041
  2. ELOXATIN [Suspect]
     Indication: COLON CANCER
     Dosage: UNK
     Route: 041
  3. VERGENTAN [Suspect]
     Indication: CHEMOTHERAPY
     Dosage: UNK
     Route: 065
  4. FOLINIC ACID [Suspect]
     Indication: COLON CANCER
     Dosage: UNK
     Route: 041

REACTIONS (5)
  - COORDINATION ABNORMAL [None]
  - GAIT DISTURBANCE [None]
  - MOTOR DYSFUNCTION [None]
  - PARKINSON'S DISEASE [None]
  - SENSORY DISTURBANCE [None]
